FAERS Safety Report 15429008 (Version 1)
Quarter: 2018Q3

REPORT INFORMATION
  Report Type: Report from Study
  Country: IE (occurrence: IE)
  Receive Date: 20180926
  Receipt Date: 20180926
  Transmission Date: 20181010
  Serious: Yes (Hospitalization)
  Sender: FDA-Public Use
  Company Number: IE-ROCHE-2170584

PATIENT
  Age: 48 Year
  Sex: Female
  Weight: 87.4 kg

DRUGS (3)
  1. ATEZOLIZUMAB. [Suspect]
     Active Substance: ATEZOLIZUMAB
     Indication: TRIPLE NEGATIVE BREAST CANCER
     Dosage: LAST DOSE 1200 MG OF ATEZOLIZUMAB
     Route: 042
     Dates: start: 20180712, end: 20180802
  2. CARBOPLATIN. [Suspect]
     Active Substance: CARBOPLATIN
     Indication: TRIPLE NEGATIVE BREAST CANCER
     Dosage: LAST DOSE 290 MG OF CARBOPLATIN
     Route: 042
     Dates: start: 20180712, end: 20180809
  3. NAB?PACLITAXEL [Suspect]
     Active Substance: PACLITAXEL
     Indication: TRIPLE NEGATIVE BREAST CANCER
     Dosage: LAST DOSE 125 MG OF NAB PACLITAXEL
     Route: 042
     Dates: start: 20180712, end: 20180809

REACTIONS (1)
  - Viral diarrhoea [Recovered/Resolved]

NARRATIVE: CASE EVENT DATE: 20180813
